FAERS Safety Report 18707254 (Version 1)
Quarter: 2021Q1

REPORT INFORMATION
  Report Type: Spontaneous
  Country: JP (occurrence: JP)
  Receive Date: 20210106
  Receipt Date: 20210106
  Transmission Date: 20210419
  Serious: Yes (Other)
  Sender: FDA-Public Use
  Company Number: JP-ACACIA PHARMA LIMITED-2103993

PATIENT

DRUGS (6)
  1. FENTANYL. [Concomitant]
     Active Substance: FENTANYL
     Route: 042
  2. SALINE [Concomitant]
     Active Substance: SODIUM CHLORIDE
     Route: 042
  3. BYFAVO [Suspect]
     Active Substance: REMIMAZOLAM BESYLATE
     Indication: GENERAL ANAESTHESIA
     Route: 042
  4. PHYSIO 140 (RINGER^S ACETATE AND GLUCOSE 1%) SOLUTION (EXCEPT SYRUP) [Concomitant]
     Route: 042
  5. REMIFENTANIL HYDROCHLORIDE. [Concomitant]
     Active Substance: REMIFENTANIL HYDROCHLORIDE
     Route: 042
  6. ROCURONIUM [Concomitant]
     Active Substance: ROCURONIUM BROMIDE
     Route: 065

REACTIONS (1)
  - Vascular access site occlusion [Unknown]
